FAERS Safety Report 15108316 (Version 1)
Quarter: 2018Q3

REPORT INFORMATION
  Report Type: Spontaneous
  Country: DE (occurrence: DE)
  Receive Date: 20180705
  Receipt Date: 20180705
  Transmission Date: 20181010
  Serious: Yes (Hospitalization)
  Sender: FDA-Public Use
  Company Number: DE-009507513-1806DEU011818

PATIENT
  Age: 58 Year
  Sex: Male

DRUGS (8)
  1. MILNACIPRAN [Concomitant]
     Active Substance: MILNACIPRAN
     Dosage: 100 MG, QD
     Route: 048
     Dates: start: 201712, end: 20180322
  2. RAMIPRIL. [Concomitant]
     Active Substance: RAMIPRIL
     Dosage: INTAKE FOR YEARS
     Route: 048
  3. PANTOPRAZOLE [Concomitant]
     Active Substance: PANTOPRAZOLE
     Dosage: INTAKE FOR MONTHS
     Route: 048
  4. MIRTAZAPINE. [Suspect]
     Active Substance: MIRTAZAPINE
     Dosage: 15 MG, QD
     Route: 048
     Dates: start: 20180227, end: 20180313
  5. FUROSEMIDE. [Concomitant]
     Active Substance: FUROSEMIDE
     Dosage: INTAKE FOR MONTHS
     Route: 048
  6. ALBUTEROL. [Concomitant]
     Active Substance: ALBUTEROL
     Dosage: INTAKE FOR YEARS
     Route: 048
  7. MELPERONE [Concomitant]
     Active Substance: MELPERONE
     Dosage: INTAKE FOR APPROXIMATELY 1 YEAR
     Route: 048
  8. L?THYROXIN [Concomitant]
     Active Substance: LEVOTHYROXINE SODIUM
     Dosage: INTAKE FOR YEARS
     Route: 048

REACTIONS (2)
  - Nightmare [Unknown]
  - Alcoholism [Recovered/Resolved]

NARRATIVE: CASE EVENT DATE: 20180306
